FAERS Safety Report 20960490 (Version 4)
Quarter: 2022Q3

REPORT INFORMATION
  Report Type: Spontaneous
  Country: US (occurrence: US)
  Receive Date: 20220615
  Receipt Date: 20220804
  Transmission Date: 20221027
  Serious: Yes (Other)
  Sender: FDA-Public Use
  Company Number: US-ORGANON-O2206USA001127

PATIENT
  Age: 25 Year
  Sex: Female
  Weight: 79.365 kg

DRUGS (1)
  1. NEXPLANON [Suspect]
     Active Substance: ETONOGESTREL
     Dosage: 1 IMPLANT (68 MILLIGRAM), ONCE IN LEFT UPPER ARM
     Route: 059
     Dates: start: 20210713

REACTIONS (3)
  - Device dislocation [Not Recovered/Not Resolved]
  - Weight increased [Unknown]
  - Complication associated with device [Recovered/Resolved]

NARRATIVE: CASE EVENT DATE: 20220524
